FAERS Safety Report 14140550 (Version 1)
Quarter: 2017Q4

REPORT INFORMATION
  Report Type: Spontaneous
  Country: US (occurrence: US)
  Receive Date: 20171030
  Receipt Date: 20171030
  Transmission Date: 20180321
  Serious: No
  Sender: FDA-Public Use
  Company Number: US-PFIZER INC-2017461354

PATIENT
  Age: 56 Year
  Sex: Male
  Weight: 74.39 kg

DRUGS (5)
  1. PRAVASTATIN. [Suspect]
     Active Substance: PRAVASTATIN
     Dosage: 20 MG, (ONE TABLET AT NIGHT OR EVERY OTHER NIGHT)
     Route: 048
  2. CRESTOR [Suspect]
     Active Substance: ROSUVASTATIN CALCIUM
     Dosage: 20 MG, (ONE TABLET AT NIGHT OR EVERY OTHER NIGHT)
     Route: 048
  3. SIMVASTATIN. [Suspect]
     Active Substance: SIMVASTATIN
     Dosage: 20 MG, (ONE TABLET AT NIGHT OR EVERY OTHER NIGHT)
     Route: 048
  4. ATORVASTATIN CALCIUM. [Suspect]
     Active Substance: ATORVASTATIN CALCIUM
     Dosage: 20 MG, (ONE TABLET AT NIGHT OR EVERY OTHER NIGHT)
     Route: 048
  5. ROSUVASTATIN. [Suspect]
     Active Substance: ROSUVASTATIN
     Dosage: 20 MG, (ONE TABLET AT NIGHT OR EVERY OTHER NIGHT)
     Route: 048

REACTIONS (5)
  - Back pain [Recovering/Resolving]
  - Myalgia [Recovering/Resolving]
  - Intentional product misuse [Unknown]
  - Muscle spasms [Recovering/Resolving]
  - Drug ineffective [Unknown]
